FAERS Safety Report 22049035 (Version 2)
Quarter: 2023Q1

REPORT INFORMATION
  Report Type: Report from Study
  Country: EG (occurrence: EG)
  Receive Date: 20230301
  Receipt Date: 20230312
  Transmission Date: 20230417
  Serious: Yes (Other)
  Sender: FDA-Public Use
  Company Number: EG-002147023-NVSC2023EG044792

PATIENT
  Age: 15 Year
  Sex: Male

DRUGS (2)
  1. COSENTYX [Suspect]
     Active Substance: SECUKINUMAB
     Indication: Psoriasis
     Dosage: 2 DOSAGE FORM, QW (2 PREFILLED PENS WEEKLY FOR 4 WEEKS AS A LOADING DOSE)
     Route: 058
     Dates: start: 20230215
  2. COSENTYX [Suspect]
     Active Substance: SECUKINUMAB
     Dosage: 2 DOSAGE FORM, QMO (2 PREFILLED PEN EVERY WEEK FOR 1 MONTH AS A LOADING DOSE (8 PENS) AS OFF?LABEL L
     Route: 058

REACTIONS (4)
  - Pruritus [Not Recovered/Not Resolved]
  - Rhinorrhoea [Recovered/Resolved]
  - Pyrexia [Recovered/Resolved]
  - Off label use [Not Recovered/Not Resolved]

NARRATIVE: CASE EVENT DATE: 20230215
